FAERS Safety Report 18684155 (Version 3)
Quarter: 2021Q1

REPORT INFORMATION
  Report Type: Spontaneous
  Country: US (occurrence: US)
  Receive Date: 20201230
  Receipt Date: 20210222
  Transmission Date: 20210419
  Serious: No
  Sender: FDA-Public Use
  Company Number: US-ALLERGAN-2048914US

PATIENT
  Age: 70 Year
  Sex: Female

DRUGS (1)
  1. DURYSTA [Suspect]
     Active Substance: BIMATOPROST
     Indication: PRODUCT USED FOR UNKNOWN INDICATION
     Dosage: 10 ?G, SINGLE
     Route: 031
     Dates: start: 20201215, end: 20201215

REACTIONS (2)
  - Device issue [Unknown]
  - Product physical issue [Unknown]
